FAERS Safety Report 14794650 (Version 1)
Quarter: 2018Q2

REPORT INFORMATION
  Report Type: Spontaneous
  Country: FR (occurrence: FR)
  Receive Date: 20180423
  Receipt Date: 20180423
  Transmission Date: 20180711
  Serious: Yes (Hospitalization, Other)
  Sender: FDA-Public Use
  Company Number: FR-PFIZER INC-2018159837

PATIENT
  Age: 74 Year
  Sex: Female

DRUGS (7)
  1. KESTINLYO [Concomitant]
     Active Substance: EBASTINE
     Dosage: UNK
  2. VENLAFAXINE HCL [Suspect]
     Active Substance: VENLAFAXINE HYDROCHLORIDE
     Dosage: 1050 MG (14 TABLETS), SINGLE
     Route: 048
     Dates: start: 20180223, end: 20180223
  3. FLECAINE [Concomitant]
     Active Substance: FLECAINIDE
     Dosage: UNK
  4. LORMETAZEPAM [Suspect]
     Active Substance: LORMETAZEPAM
     Dosage: 56 MG (25 TABLETS), SINGLE
     Route: 048
     Dates: start: 20180223, end: 20180223
  5. HYLOVIS [Concomitant]
     Dosage: UNK
  6. CALCIUM [Concomitant]
     Active Substance: CALCIUM
     Dosage: UNK
  7. COLECALCIFEROL [Concomitant]
     Active Substance: CHOLECALCIFEROL
     Dosage: UNK

REACTIONS (6)
  - Depressed level of consciousness [Recovered/Resolved]
  - Intentional overdose [Unknown]
  - Bradypnoea [Recovered/Resolved]
  - Poisoning deliberate [Unknown]
  - Miosis [Recovered/Resolved]
  - Confusional state [Recovered/Resolved]

NARRATIVE: CASE EVENT DATE: 20180223
